FAERS Safety Report 19011777 (Version 1)
Quarter: 2021Q1

REPORT INFORMATION
  Report Type: Spontaneous
  Country: CN (occurrence: CN)
  Receive Date: 20210315
  Receipt Date: 20210315
  Transmission Date: 20210420
  Serious: Yes (Hospitalization, Other)
  Sender: FDA-Public Use
  Company Number: CN-PFIZER INC-2021229744

PATIENT
  Age: 58 Year
  Sex: Female

DRUGS (5)
  1. CEFOPERAZONE SODIUM/TAZOBACTAM SODIUM [Suspect]
     Active Substance: CEFOPERAZONE\TAZOBACTAM SODIUM
     Dosage: 2 G, THRICE A DAY
     Route: 041
     Dates: start: 20210128, end: 20210203
  2. SODIUM CHLORIDE. [Concomitant]
     Active Substance: SODIUM CHLORIDE
     Indication: VEHICLE SOLUTION USE
     Dosage: 100 ML, TWICE A DAY
     Route: 041
     Dates: start: 20210125, end: 20210203
  3. WARFARIN SODIUM. [Suspect]
     Active Substance: WARFARIN SODIUM
     Indication: THROMBOSIS PROPHYLAXIS
     Dosage: 1.25 MG, ONCE A DAY
     Route: 048
     Dates: start: 20210128, end: 20210203
  4. CEFOPERAZONE SODIUM/TAZOBACTAM SODIUM [Suspect]
     Active Substance: CEFOPERAZONE\TAZOBACTAM SODIUM
     Indication: INFECTION
     Dosage: 2 G, TWICE A DAY
     Route: 041
     Dates: start: 20210125, end: 20210128
  5. LINEZOLID. [Suspect]
     Active Substance: LINEZOLID
     Indication: ANTI-INFECTIVE THERAPY
     Dosage: 600 MG, THRICE A DAY (Q12H)
     Route: 041
     Dates: start: 20210201, end: 20210203

REACTIONS (3)
  - Cerebral haemorrhage [Unknown]
  - Brain herniation [Unknown]
  - Headache [Unknown]

NARRATIVE: CASE EVENT DATE: 20210202
